FAERS Safety Report 23560998 (Version 1)
Quarter: 2024Q1

REPORT INFORMATION
  Report Type: Spontaneous
  Country: US (occurrence: US)
  Receive Date: 20240224
  Receipt Date: 20240224
  Transmission Date: 20240410
  Serious: No
  Sender: FDA-Public Use
  Company Number: US-002147023-NVSC2023US181671

PATIENT
  Sex: Female

DRUGS (2)
  1. EXELON [Suspect]
     Active Substance: RIVASTIGMINE TARTRATE
     Indication: Product used for unknown indication
     Dosage: UNK
     Route: 065
  2. RIVASTIGMINE TRANSDERMAL SYSTEM [Suspect]
     Active Substance: RIVASTIGMINE
     Indication: Product used for unknown indication
     Dosage: UNK, (STRENGTH 4.6 MG/24 HOURS)
     Route: 065

REACTIONS (8)
  - Skin discolouration [Unknown]
  - Skin exfoliation [Unknown]
  - Pruritus [Unknown]
  - Miliaria [Unknown]
  - Peripheral swelling [Unknown]
  - Application site rash [Unknown]
  - Application site swelling [Unknown]
  - Product complaint [Unknown]
